FAERS Safety Report 17265732 (Version 1)
Quarter: 2020Q1

REPORT INFORMATION
  Report Type: Spontaneous
  Country: US (occurrence: US)
  Receive Date: 20200114
  Receipt Date: 20200114
  Transmission Date: 20200409
  Serious: No
  Sender: FDA-Public Use
  Company Number: US-ELI_LILLY_AND_COMPANY-US201912011715

PATIENT
  Age: 65 Year
  Sex: Female

DRUGS (3)
  1. TRULICITY [Suspect]
     Active Substance: DULAGLUTIDE
     Indication: DIABETES MELLITUS
     Dosage: 0.75 MG, WEEKLY (1/W)
     Route: 058
     Dates: start: 20191209
  2. BENADRYL [DIPHENHYDRAMINE;PARACETAMOL;PHENYLP [Suspect]
     Active Substance: ACETAMINOPHEN\DIPHENHYDRAMINE\PHENYLPROPANOLAMINE
     Indication: SINUSITIS
     Dosage: UNK UNK, UNKNOWN
     Route: 065
  3. TYLENOL [Suspect]
     Active Substance: ACETAMINOPHEN
     Indication: SINUSITIS
     Dosage: UNK UNK, UNKNOWN
     Route: 065

REACTIONS (2)
  - Sinusitis [Not Recovered/Not Resolved]
  - Feeling abnormal [Not Recovered/Not Resolved]
